FAERS Safety Report 7178043-7 (Version None)
Quarter: 2010Q4

REPORT INFORMATION
  Report Type: 
  Country: None (occurrence: None)
  Receive Date: 20101220
  Receipt Date: 20101209
  Transmission Date: 20110411
  Serious: Yes (Death, Hospitalization, Congenital Anomaly)
  Sender: FDA-Public Use
  Company Number: A0679781A

PATIENT
  Sex: Male
  Weight: 3.5 kg

DRUGS (3)
  1. PAXIL [Suspect]
     Indication: DEPRESSION
     Dosage: 20MG PER DAY
     Dates: start: 19951101, end: 20030201
  2. PRENATAL VITAMINS [Concomitant]
  3. TYLENOL (CAPLET) [Concomitant]

REACTIONS (7)
  - ATRIAL SEPTAL DEFECT [None]
  - CONGENITAL AORTIC ATRESIA [None]
  - DRUG EXPOSURE DURING PREGNANCY [None]
  - HYPOPLASTIC LEFT HEART SYNDROME [None]
  - HYPOPLASTIC RIGHT HEART SYNDROME [None]
  - MITRAL VALVE ATRESIA [None]
  - TRICUSPID VALVE INCOMPETENCE [None]
